FAERS Safety Report 25246971 (Version 2)
Quarter: 2025Q2

REPORT INFORMATION
  Report Type: Spontaneous
  Country: US (occurrence: US)
  Receive Date: 20250428
  Receipt Date: 20250616
  Transmission Date: 20250716
  Serious: Yes (Other)
  Sender: ROCHE
  Company Number: US-ROCHE-10000267048

PATIENT
  Age: 41 Year
  Sex: Female
  Weight: 86.2 kg

DRUGS (1)
  1. XOLAIR [Suspect]
     Active Substance: OMALIZUMAB
     Indication: Idiopathic urticaria
     Dosage: STRENGTH AND DOSE : 300MG/2 ML
     Route: 058
     Dates: start: 20250416, end: 20250417

REACTIONS (5)
  - Injection site erythema [Unknown]
  - Injection site pruritus [Unknown]
  - Urticaria [Unknown]
  - Asthma [Unknown]
  - Pruritus [Unknown]

NARRATIVE: CASE EVENT DATE: 20250417
